FAERS Safety Report 7199380-6 (Version None)
Quarter: 2010Q4

REPORT INFORMATION
  Report Type: 
  Country: None (occurrence: None)
  Receive Date: 20101228
  Receipt Date: 20101217
  Transmission Date: 20110411
  Serious: Yes (Other)
  Sender: FDA-Public Use
  Company Number: US-PFIZER INC-US-WYE-H18296310

PATIENT
  Sex: Female
  Weight: 64.4 kg

DRUGS (5)
  1. EFFEXOR XR [Suspect]
     Indication: HOT FLUSH
     Dosage: 75.0 MG, 1X/DAY
     Route: 065
  2. EFFEXOR XR [Suspect]
     Dosage: 75.0 MG, 2X/DAY
     Route: 065
  3. AROMASIN [Suspect]
     Indication: BREAST CANCER
     Dosage: 25.0 MG, 1X/DAY
     Route: 065
  4. VENLAFAXINE HCL [Suspect]
     Indication: HOT FLUSH
     Dosage: 150 MG, 1X/DAY
     Route: 065
  5. ATENOLOL [Concomitant]

REACTIONS (7)
  - ARTHRALGIA [None]
  - CONDITION AGGRAVATED [None]
  - DRUG INEFFECTIVE FOR UNAPPROVED INDICATION [None]
  - FEELING ABNORMAL [None]
  - NAUSEA [None]
  - OSTEOARTHRITIS [None]
  - OSTEOPOROSIS [None]
